FAERS Safety Report 8189380-1 (Version None)
Quarter: 2012Q1

REPORT INFORMATION
  Report Type: 
  Country: None (occurrence: None)
  Receive Date: 20120307
  Receipt Date: 20120227
  Transmission Date: 20120608
  Serious: Yes (Other)
  Sender: FDA-Public Use
  Company Number: BR-SANOFI-AVENTIS-2012SA013146

PATIENT
  Sex: Female
  Weight: 60 kg

DRUGS (7)
  1. SOLOSTAR [Suspect]
     Indication: DEVICE THERAPY
     Dates: start: 20060101
  2. MICARDIS [Concomitant]
     Indication: BLOOD PRESSURE
     Route: 048
     Dates: start: 20111001
  3. ACETYLSALICYLIC ACID SRT [Concomitant]
     Route: 048
     Dates: start: 20111101
  4. ATORVASTATIN CALCIUM [Concomitant]
     Route: 048
     Dates: start: 20020101
  5. LANTUS [Suspect]
     Route: 058
     Dates: start: 20060101
  6. AMLODIPINE BESYLATE [Concomitant]
     Indication: BLOOD PRESSURE
     Route: 048
     Dates: start: 20100101
  7. URBANIL [Concomitant]
     Indication: SEDATION
     Route: 048
     Dates: start: 20020101

REACTIONS (4)
  - INSOMNIA [None]
  - EXOSTOSIS [None]
  - BONE PAIN [None]
  - HYPERGLYCAEMIA [None]
